FAERS Safety Report 4488659-4 (Version None)
Quarter: 2004Q4

REPORT INFORMATION
  Report Type: 
  Country: None (occurrence: None)
  Receive Date: 20041026
  Receipt Date: 20041013
  Transmission Date: 20050328
  Serious: Yes (Other)
  Sender: FDA-Public Use
  Company Number: USA041081047

PATIENT
  Age: 68 Year
  Sex: Female

DRUGS (1)
  1. HUMALOG [Suspect]
     Indication: DRUG USE FOR UNKNOWN INDICATION
     Dosage: 60 U

REACTIONS (6)
  - BLOOD GLUCOSE INCREASED [None]
  - CEREBROVASCULAR ACCIDENT [None]
  - KNEE OPERATION [None]
  - MEDICATION ERROR [None]
  - MYOCARDIAL INFARCTION [None]
  - PHARMACEUTICAL PRODUCT COMPLAINT [None]
